FAERS Safety Report 6615421-6 (Version None)
Quarter: 2010Q1

REPORT INFORMATION
  Report Type: 
  Country: None (occurrence: None)
  Receive Date: 20100305
  Receipt Date: 20091119
  Transmission Date: 20100710
  Serious: No
  Sender: FDA-Public Use
  Company Number: A0818139A

PATIENT
  Age: 49 Year
  Sex: Female

DRUGS (3)
  1. REQUIP [Suspect]
     Indication: RESTLESS LEGS SYNDROME
     Dosage: 4MG PER DAY
     Route: 048
     Dates: start: 20091001
  2. PRAVASTATIN [Concomitant]
  3. LISINOPRIL AND HYDROCHLOROTHIAZIDE [Concomitant]

REACTIONS (3)
  - DRUG ADMINISTRATION ERROR [None]
  - MALAISE [None]
  - VOMITING [None]
